FAERS Safety Report 14015374 (Version 5)
Quarter: 2018Q1

REPORT INFORMATION
  Report Type: Spontaneous
  Country: JP (occurrence: JP)
  Receive Date: 20170927
  Receipt Date: 20180124
  Transmission Date: 20180508
  Serious: Yes (Other)
  Sender: FDA-Public Use
  Company Number: JP-PFIZER INC-2017414251

PATIENT
  Age: 77 Year
  Sex: Female

DRUGS (19)
  1. LYRICA [Suspect]
     Active Substance: PREGABALIN
     Dosage: 75 MG, 1X/DAY
     Route: 048
     Dates: start: 20171012, end: 20171018
  2. BONOTEO [Concomitant]
     Active Substance: MINODRONIC ACID
     Dosage: 50 MG, UNK
     Dates: start: 20160519
  3. FUROSEMIDE. [Concomitant]
     Active Substance: FUROSEMIDE
     Indication: CARDIAC FAILURE
     Dosage: 20 MG, 1X/DAY
     Route: 048
     Dates: start: 20170724, end: 20170824
  4. CARVEDILOL. [Concomitant]
     Active Substance: CARVEDILOL
     Dosage: 2.5 MG, 1X/DAY
     Route: 048
     Dates: start: 20170724
  5. LIXIANA [Concomitant]
     Active Substance: EDOXABAN TOSYLATE
     Indication: ARRHYTHMIA
  6. CELECOX [Suspect]
     Active Substance: CELECOXIB
     Indication: BACK PAIN
     Dosage: 100 MG, 2X/DAY
     Route: 048
     Dates: start: 20160519
  7. SPIRONOLACTONE. [Concomitant]
     Active Substance: SPIRONOLACTONE
     Indication: ARRHYTHMIA
     Dosage: 25 MG, 1X/DAY
     Route: 048
     Dates: start: 20170724, end: 20170824
  8. ZACRAS [Concomitant]
     Active Substance: AMLODIPINE BESYLATE\AZILSARTAN
     Dosage: UNK
     Dates: end: 201707
  9. FUROSEMIDE. [Concomitant]
     Active Substance: FUROSEMIDE
     Indication: ARRHYTHMIA
     Dosage: 10 MG, UNK (HALVED 20MG TABLET)
     Route: 048
     Dates: start: 20170825
  10. SPIRONOLACTONE. [Concomitant]
     Active Substance: SPIRONOLACTONE
     Indication: CARDIAC FAILURE
     Dosage: 12.5 MG, UNK (HALVED 25MG TABLET)
     Route: 048
     Dates: start: 20170825
  11. LYRICA [Suspect]
     Active Substance: PREGABALIN
     Indication: BACK PAIN
     Dosage: 150 MG, 2X/DAY (300MG (FOUR CAPSULES) DAILY)
     Route: 048
     Dates: start: 20160519, end: 20170824
  12. LYRICA [Suspect]
     Active Substance: PREGABALIN
     Dosage: 75 MG, 2X/DAY
     Route: 048
     Dates: start: 20170925, end: 20171011
  13. TRAMCET [Concomitant]
     Active Substance: ACETAMINOPHEN\TRAMADOL
     Indication: BACK PAIN
     Dosage: 1 DF, 2X/DAY
     Route: 048
     Dates: start: 20160519
  14. RENIVACE [Concomitant]
     Active Substance: ENALAPRIL
     Dosage: UNK
     Dates: start: 20170724
  15. MYSER [Concomitant]
     Active Substance: DIFLUPREDNATE
     Dosage: UNK
     Dates: start: 20160519
  16. ENALAPRIL M [Concomitant]
     Dosage: 5 MG, 1X/DAY
     Route: 048
     Dates: start: 20170724
  17. BETANIS [Concomitant]
     Active Substance: MIRABEGRON
     Dosage: 1 DF, DAILY
     Dates: start: 20170519
  18. LYRICA [Suspect]
     Active Substance: PREGABALIN
     Indication: BACK PAIN
     Dosage: 225 MG, DAILY
     Route: 048
     Dates: start: 20170825, end: 20170924
  19. LIXIANA [Concomitant]
     Active Substance: EDOXABAN TOSYLATE
     Indication: CARDIAC FAILURE
     Dosage: 30 MG, 1X/DAY
     Route: 048
     Dates: start: 20170724

REACTIONS (8)
  - Hypotension [Unknown]
  - Drug ineffective [Recovering/Resolving]
  - Brain natriuretic peptide increased [Unknown]
  - Cardiac failure [Unknown]
  - Peripheral swelling [Recovering/Resolving]
  - Somnolence [Recovering/Resolving]
  - Blood albumin decreased [Unknown]
  - Peripheral coldness [Unknown]

NARRATIVE: CASE EVENT DATE: 201707
